FAERS Safety Report 21806128 (Version 1)
Quarter: 2023Q1

REPORT INFORMATION
  Report Type: Spontaneous
  Country: FR (occurrence: FR)
  Receive Date: 20230102
  Receipt Date: 20230102
  Transmission Date: 20230417
  Serious: Yes (Death)
  Sender: FDA-Public Use
  Company Number: None

PATIENT
  Age: 87 Year
  Sex: Female
  Weight: 75 kg

DRUGS (4)
  1. AMOXICILLIN [Suspect]
     Active Substance: AMOXICILLIN
     Indication: Bronchitis
     Dosage: UNK
     Route: 048
     Dates: start: 20220416, end: 20220423
  2. AUGMENTIN [Suspect]
     Active Substance: AMOXICILLIN\CLAVULANATE POTASSIUM
     Indication: Bronchitis
     Dosage: 3 G, QD (3G/J)
     Route: 048
     Dates: start: 20220502, end: 20220510
  3. PREDNISOLONE SODIUM METAZOATE [Suspect]
     Active Substance: PREDNISOLONE SODIUM METAZOATE
     Indication: Bronchitis
     Dosage: UNK
     Route: 048
     Dates: start: 20220423, end: 20220427
  4. PRISTINAMYCIN [Suspect]
     Active Substance: PRISTINAMYCIN
     Indication: Urinary tract infection
     Dosage: 1500 MG (500 MG 3 FOIS PAR JOUR)
     Route: 048
     Dates: start: 20220423, end: 20220502

REACTIONS (1)
  - Fixed eruption [Fatal]

NARRATIVE: CASE EVENT DATE: 20220511
